FAERS Safety Report 24259692 (Version 1)
Quarter: 2024Q3

REPORT INFORMATION
  Report Type: Report from Study
  Country: CA (occurrence: CA)
  Receive Date: 20240828
  Receipt Date: 20240828
  Transmission Date: 20241016
  Serious: Yes (Other)
  Sender: ABBVIE
  Company Number: CA-ABBVIE-5894273

PATIENT
  Age: 21 Year
  Sex: Male
  Weight: 68 kg

DRUGS (1)
  1. RINVOQ [Suspect]
     Active Substance: UPADACITINIB
     Indication: Crohn^s disease
     Route: 048
     Dates: start: 20240119

REACTIONS (5)
  - Intestinal resection [Unknown]
  - Abscess [Recovered/Resolved]
  - Social problem [Unknown]
  - Abdominal pain [Unknown]
  - Impaired work ability [Unknown]

NARRATIVE: CASE EVENT DATE: 20240101
